FAERS Safety Report 14974338 (Version 1)
Quarter: 2018Q2

REPORT INFORMATION
  Report Type: Spontaneous
  Country: JP (occurrence: JP)
  Receive Date: 20180605
  Receipt Date: 20180605
  Transmission Date: 20180711
  Serious: Yes (Other)
  Sender: FDA-Public Use
  Company Number: JP-ORPHAN EUROPE-2049013

PATIENT
  Age: 3 Year
  Sex: Female

DRUGS (2)
  1. CYSTADANE [Suspect]
     Active Substance: BETAINE
     Route: 048
     Dates: start: 20170124
  2. CYSTADANE [Suspect]
     Active Substance: BETAINE
     Indication: HOMOCYSTINURIA
     Route: 048
     Dates: start: 20150503, end: 20170123

REACTIONS (1)
  - Epilepsy [Recovering/Resolving]

NARRATIVE: CASE EVENT DATE: 20180122
